FAERS Safety Report 11362696 (Version 1)
Quarter: 2015Q3

REPORT INFORMATION
  Report Type: Spontaneous
  Country: GB (occurrence: GB)
  Receive Date: 20150810
  Receipt Date: 20150810
  Transmission Date: 20151125
  Serious: Yes (Other)
  Sender: FDA-Public Use
  Company Number: PHHY2015GB091950

PATIENT
  Sex: Female

DRUGS (2)
  1. DOSULEPIN HYDROCHLORIDE [Interacting]
     Active Substance: DOTHIEPIN HYDROCHLORIDE
     Indication: PRODUCT USED FOR UNKNOWN INDICATION
     Dosage: 75 MG
     Route: 048
  2. DIAZEPAM. [Suspect]
     Active Substance: DIAZEPAM
     Indication: ANXIETY
     Dosage: 2 MG, TID
     Route: 048

REACTIONS (2)
  - Drug interaction [Unknown]
  - Suicidal ideation [Not Recovered/Not Resolved]
